FAERS Safety Report 17236462 (Version 1)
Quarter: 2020Q1

REPORT INFORMATION
  Report Type: Spontaneous
  Country: GR (occurrence: GR)
  Receive Date: 20200106
  Receipt Date: 20200106
  Transmission Date: 20200409
  Serious: Yes (Hospitalization, Other)
  Sender: FDA-Public Use
  Company Number: GR-PFIZER INC-2020000058

PATIENT
  Sex: Female

DRUGS (5)
  1. INSPRA [Suspect]
     Active Substance: EPLERENONE
     Dosage: 50 MG, 1X/DAY
     Dates: start: 2019
  2. SINTROM [Concomitant]
     Active Substance: ACENOCOUMAROL
     Indication: ATRIAL FIBRILLATION
     Dosage: UNK
  3. INSPRA [Suspect]
     Active Substance: EPLERENONE
     Indication: CARDIAC FAILURE
     Dosage: 25 MG (HALF OF 50 MG), 1X/DAY
     Dates: start: 2019, end: 2019
  4. LASIX [Concomitant]
     Active Substance: FUROSEMIDE
     Indication: FLUID RETENTION
     Dosage: UNK
  5. CARVEPEN [Concomitant]
     Active Substance: CARVEDILOL
     Indication: ATRIAL FIBRILLATION
     Dosage: UNK

REACTIONS (6)
  - Blood bilirubin increased [Unknown]
  - Peripheral swelling [Not Recovered/Not Resolved]
  - Blood uric acid increased [Unknown]
  - Blood acid phosphatase increased [Unknown]
  - Dry mouth [Not Recovered/Not Resolved]
  - Arrhythmia [Not Recovered/Not Resolved]

NARRATIVE: CASE EVENT DATE: 2019
